FAERS Safety Report 5956533-X (Version None)
Quarter: 2008Q4

REPORT INFORMATION
  Report Type: 
  Country: None (occurrence: None)
  Receive Date: 20081118
  Receipt Date: 20081114
  Transmission Date: 20090506
  Serious: Yes (Other)
  Sender: FDA-Public Use
  Company Number: B0546324A

PATIENT
  Age: 66 Year
  Sex: Female

DRUGS (2)
  1. PAXIL [Suspect]
     Indication: MAJOR DEPRESSION
     Route: 048
  2. BROMAZEPAM [Concomitant]
     Route: 065

REACTIONS (4)
  - AFFECT LABILITY [None]
  - DELIRIUM [None]
  - DRUG WITHDRAWAL SYNDROME [None]
  - LOGORRHOEA [None]
